FAERS Safety Report 6528176-0 (Version None)
Quarter: 2010Q1

REPORT INFORMATION
  Report Type: 
  Country: None (occurrence: None)
  Receive Date: 20100106
  Receipt Date: 20091226
  Transmission Date: 20100710
  Serious: No
  Sender: FDA-Public Use
  Company Number: US-B.I. PHARMACEUTICALS,INC./RIDGEFIELD-2009-BP-14952BP

PATIENT
  Sex: Male

DRUGS (4)
  1. ZANTAC 150 [Suspect]
     Indication: ABDOMINAL DISCOMFORT
     Dosage: 450 MG
     Route: 048
     Dates: start: 20091226, end: 20091226
  2. KLONOPIN [Concomitant]
     Indication: ANXIETY
     Dosage: 2 MG
     Dates: start: 20070101
  3. XANAX [Concomitant]
     Indication: ANXIETY
     Dosage: 1 MG
     Dates: start: 20070101
  4. PROZAC [Concomitant]
     Indication: DEPRESSION
     Dosage: 20 MG
     Dates: start: 20070101

REACTIONS (3)
  - DIZZINESS [None]
  - EAR PAIN [None]
  - NAUSEA [None]
